FAERS Safety Report 22001474 (Version 1)
Quarter: 2023Q1

REPORT INFORMATION
  Report Type: Report from Study
  Country: US (occurrence: US)
  Receive Date: 20230216
  Receipt Date: 20230216
  Transmission Date: 20230418
  Serious: Yes (Hospitalization)
  Sender: FDA-Public Use
  Company Number: US-BAYER-2023A011228

PATIENT
  Age: 53 Year
  Sex: Male

DRUGS (1)
  1. STIVARGA [Suspect]
     Active Substance: REGORAFENIB
     Indication: Rectal cancer
     Dosage: 80 MG, QD FOR 21 DAYS, OFF 7 DAYS
     Route: 048
     Dates: start: 20230122

REACTIONS (8)
  - Constipation [Not Recovered/Not Resolved]
  - Pain [None]
  - Insomnia [Not Recovered/Not Resolved]
  - Myalgia [Not Recovered/Not Resolved]
  - Groin pain [Not Recovered/Not Resolved]
  - Fatigue [Not Recovered/Not Resolved]
  - Nausea [None]
  - Off label use [None]

NARRATIVE: CASE EVENT DATE: 20230122
